FAERS Safety Report 8757724 (Version 1)
Quarter: 2012Q4

REPORT INFORMATION
  Report Type: 
  Country: US (occurrence: US)
  Receive Date: 20120828
  Receipt Date: 20120828
  Transmission Date: 20130627
  Serious: No
  Sender: FDA-Public Use
  Company Number: US-PFIZER INC-2012208397

PATIENT
  Age: 57 Year
  Sex: Male
  Weight: 81.63 kg

DRUGS (6)
  1. LYRICA [Suspect]
     Indication: MULTIPLE SCLEROSIS
     Dosage: 100 mg, 3x/day
     Dates: end: 20120819
  2. BACLOFEN [Concomitant]
     Dosage: 10 mg, 3x/day
  3. TYSABRI [Concomitant]
     Dosage: UNK
  4. ALOXI [Concomitant]
     Dosage: UNK
  5. AMPYRA [Concomitant]
     Dosage: UNK
  6. KLONOPIN [Concomitant]
     Indication: ANXIETY
     Dosage: UNK

REACTIONS (2)
  - Muscular weakness [Not Recovered/Not Resolved]
  - Pain in extremity [Not Recovered/Not Resolved]
